FAERS Safety Report 15703142 (Version 1)
Quarter: 2018Q4

REPORT INFORMATION
  Report Type: Spontaneous
  Country: US (occurrence: US)
  Receive Date: 20181208
  Receipt Date: 20181208
  Transmission Date: 20190205
  Serious: Yes (Other)
  Sender: FDA-Public Use
  Company Number: None

PATIENT
  Age: 71 Year
  Sex: Female
  Weight: 85.5 kg

DRUGS (1)
  1. HUMALOG KWIKPEN [Suspect]
     Active Substance: INSULIN LISPRO
     Indication: DIABETES MELLITUS
     Dosage: ?          OTHER STRENGTH:UNIT/ML;QUANTITY:1 INJECTION(S);OTHER ROUTE:INJECTION 2^ OUT FROM NAVAL?
     Dates: start: 20180908, end: 20181107

REACTIONS (7)
  - Ageusia [None]
  - Product substitution issue [None]
  - Hypoaesthesia oral [None]
  - Burning mouth syndrome [None]
  - Coating in mouth [None]
  - Dysgeusia [None]
  - Gingival bleeding [None]

NARRATIVE: CASE EVENT DATE: 20180908
